FAERS Safety Report 5386656-8 (Version None)
Quarter: 2007Q3

REPORT INFORMATION
  Report Type: 
  Country: None (occurrence: None)
  Receive Date: 20070713
  Receipt Date: 20070702
  Transmission Date: 20080115
  Serious: Yes (Other)
  Sender: FDA-Public Use
  Company Number: ES-MERCK-0707ESP00008

PATIENT
  Age: 68 Year
  Sex: Female

DRUGS (1)
  1. TIMOPTIC [Suspect]
     Indication: OCULAR HYPERTENSION
     Route: 047

REACTIONS (3)
  - CHOROIDAL DETACHMENT [None]
  - HYPOTONY OF EYE [None]
  - MACULOPATHY [None]
